FAERS Safety Report 15500645 (Version 2)
Quarter: 2022Q2

REPORT INFORMATION
  Report Type: Report from Study
  Country: CA (occurrence: CA)
  Receive Date: 20181015
  Receipt Date: 20220514
  Transmission Date: 20220721
  Serious: Yes (Other)
  Sender: FDA-Public Use
  Company Number: PHHY2017CA028446

PATIENT
  Age: 45 Year
  Sex: Female

DRUGS (1)
  1. GILENYA [Suspect]
     Active Substance: FINGOLIMOD HYDROCHLORIDE
     Indication: Relapsing-remitting multiple sclerosis
     Dosage: UNK
     Route: 048
     Dates: start: 20170214

REACTIONS (16)
  - Multiple sclerosis relapse [Unknown]
  - Fatigue [Unknown]
  - Malaise [Unknown]
  - Hypoaesthesia [Unknown]
  - Irritability [Unknown]
  - Vision blurred [Unknown]
  - Decreased appetite [Unknown]
  - Headache [Unknown]
  - Back pain [Unknown]
  - Peripheral swelling [Not Recovered/Not Resolved]
  - Constipation [Unknown]
  - Erythema [Unknown]
  - Skin mass [Unknown]
  - Hypophagia [Unknown]
  - Rash pruritic [Unknown]
  - Diarrhoea [Unknown]

NARRATIVE: CASE EVENT DATE: 20170226
